FAERS Safety Report 9654883 (Version 1)
Quarter: 2013Q4

REPORT INFORMATION
  Report Type: Spontaneous
  Country: US (occurrence: US)
  Receive Date: 20131029
  Receipt Date: 20131029
  Transmission Date: 20140711
  Serious: No
  Sender: FDA-Public Use
  Company Number: US-PURDUE-USA-2012-0090603

PATIENT
  Sex: Female

DRUGS (4)
  1. OXYCONTIN (NDA 22-272) [Suspect]
     Indication: MUSCULOSKELETAL CHEST PAIN
     Dosage: 20 MG, UNK
     Route: 048
     Dates: start: 2010
  2. OXYCONTIN (NDA 22-272) [Suspect]
     Indication: AXILLARY PAIN
  3. OXYCODONE HYDROCHLORIDE (SIMILAR TO NDA 22-272) [Concomitant]
     Indication: MUSCULOSKELETAL CHEST PAIN
     Dosage: 15 MG, UNK
     Route: 048
  4. OXYCODONE HYDROCHLORIDE (SIMILAR TO NDA 22-272) [Concomitant]
     Indication: AXILLARY PAIN

REACTIONS (8)
  - Ear pain [Not Recovered/Not Resolved]
  - Ear infection [Unknown]
  - Swollen tongue [Unknown]
  - Pruritus [Unknown]
  - Urticaria [Not Recovered/Not Resolved]
  - Abdominal discomfort [Not Recovered/Not Resolved]
  - Dysphagia [Not Recovered/Not Resolved]
  - Gastrointestinal disorder [Not Recovered/Not Resolved]
